FAERS Safety Report 9098739 (Version 1)
Quarter: 2013Q1

REPORT INFORMATION
  Report Type: Spontaneous
  Country: NL (occurrence: NL)
  Receive Date: 20130213
  Receipt Date: 20130213
  Transmission Date: 20140127
  Serious: Yes (Hospitalization, Other)
  Sender: FDA-Public Use
  Company Number: NL-ASTRAZENECA-2013SE08055

PATIENT
  Age: 22 Year
  Sex: Female
  Weight: 100 kg

DRUGS (1)
  1. SEROQUEL [Suspect]
     Indication: BORDERLINE PERSONALITY DISORDER
     Route: 048

REACTIONS (3)
  - Exposure during pregnancy [Unknown]
  - Gestational hypertension [Recovered/Resolved]
  - Psychotic disorder [Unknown]
